FAERS Safety Report 7038131-2 (Version None)
Quarter: 2010Q4

REPORT INFORMATION
  Report Type: 
  Country: None (occurrence: None)
  Receive Date: 20101011
  Receipt Date: 20101006
  Transmission Date: 20110411
  Serious: Yes (Death, Hospitalization, Disabling)
  Sender: FDA-Public Use
  Company Number: UG-ABBOTT-10P-165-0676473-00

PATIENT
  Sex: Female

DRUGS (10)
  1. ALUVIA TABLETS [Suspect]
     Indication: HIV INFECTION
     Route: 048
     Dates: start: 20100818
  2. RALTEGRAVIR [Concomitant]
     Indication: HIV INFECTION
     Dates: start: 20100818
  3. COTRIM [Concomitant]
     Indication: PRODUCT USED FOR UNKNOWN INDICATION
     Dates: start: 20061101
  4. STREPTOMYCIN [Concomitant]
     Indication: PRODUCT USED FOR UNKNOWN INDICATION
     Dates: start: 20100720
  5. ETHAMBUTOL HYDROCHLORIDE [Concomitant]
     Indication: PRODUCT USED FOR UNKNOWN INDICATION
     Dates: start: 20100720
  6. ISONIAZID [Concomitant]
     Indication: PRODUCT USED FOR UNKNOWN INDICATION
     Dates: start: 20100720
  7. PYRAZINAMIDE [Concomitant]
     Indication: PRODUCT USED FOR UNKNOWN INDICATION
     Dates: start: 20100720
  8. RIFABUTIN [Concomitant]
     Indication: PRODUCT USED FOR UNKNOWN INDICATION
     Dates: start: 20100720
  9. ACYCLOVIR SODIUM [Concomitant]
     Indication: PRODUCT USED FOR UNKNOWN INDICATION
     Dates: start: 20100818, end: 20100824
  10. CEFTRIAXONE [Concomitant]
     Indication: PRODUCT USED FOR UNKNOWN INDICATION
     Dates: start: 20100818

REACTIONS (6)
  - CYSTITIS [None]
  - DEATH [None]
  - OESOPHAGEAL CANDIDIASIS [None]
  - PYREXIA [None]
  - TOXOPLASMOSIS [None]
  - VOMITING [None]
